FAERS Safety Report 7359890-5 (Version None)
Quarter: 2011Q1

REPORT INFORMATION
  Report Type: 
  Country: None (occurrence: None)
  Receive Date: 20110317
  Receipt Date: 20110311
  Transmission Date: 20110831
  Serious: Yes (Other)
  Sender: FDA-Public Use
  Company Number: US-ELI_LILLY_AND_COMPANY-US201101002438

PATIENT
  Sex: Female

DRUGS (2)
  1. CRESTOR [Concomitant]
     Dates: start: 20101001
  2. FORTEO [Suspect]

REACTIONS (8)
  - MYALGIA [None]
  - BACK PAIN [None]
  - MUSCLE SPASMS [None]
  - TOOTH FRACTURE [None]
  - INJECTION SITE HAEMORRHAGE [None]
  - HEART RATE INCREASED [None]
  - HEART VALVE INCOMPETENCE [None]
  - INJECTION SITE ERYTHEMA [None]
